FAERS Safety Report 7539689-7 (Version None)
Quarter: 2011Q2

REPORT INFORMATION
  Report Type: 
  Country: None (occurrence: None)
  Receive Date: 20110610
  Receipt Date: 20110527
  Transmission Date: 20111010
  Serious: Yes (Other)
  Sender: FDA-Public Use
  Company Number: MX-JNJFOC-20110407325

PATIENT
  Age: 38 Year
  Sex: Male
  Weight: 75 kg

DRUGS (2)
  1. REGAINE 5% [Suspect]
     Route: 061
  2. REGAINE 5% [Suspect]
     Indication: ALOPECIA
     Route: 061
     Dates: start: 20110326, end: 20110402

REACTIONS (7)
  - NAUSEA [None]
  - MALAISE [None]
  - DYSPNOEA [None]
  - TACHYCARDIA [None]
  - HYPERTENSION [None]
  - VOMITING [None]
  - SYNCOPE [None]
